FAERS Safety Report 18420576 (Version 2)
Quarter: 2020Q4

REPORT INFORMATION
  Report Type: Spontaneous
  Country: RU (occurrence: RU)
  Receive Date: 20201023
  Receipt Date: 20201029
  Transmission Date: 20210114
  Serious: Yes (Other)
  Sender: FDA-Public Use
  Company Number: RU-ROCHE-2693846

PATIENT
  Age: 60 Year
  Sex: Female

DRUGS (8)
  1. BISOPROLOL [Concomitant]
     Active Substance: BISOPROLOL
     Dates: start: 20160630
  2. TAMOXIFEN [Concomitant]
     Active Substance: TAMOXIFEN
     Route: 048
     Dates: start: 20180719, end: 20180806
  3. ATEZOLIZUMAB. [Suspect]
     Active Substance: ATEZOLIZUMAB
     Indication: BREAST CANCER
     Route: 041
  4. CAPECITABINE. [Suspect]
     Active Substance: CAPECITABINE
     Indication: BREAST CANCER
     Route: 048
  5. ZOLEDRONIC ACID [Concomitant]
     Active Substance: ZOLEDRONIC ACID
  6. NAB-PACLITAXEL [Concomitant]
     Active Substance: PACLITAXEL
     Route: 041
  7. ATORVASTATIN [Concomitant]
     Active Substance: ATORVASTATIN
     Dates: start: 20160630
  8. ENALAPRIL [Concomitant]
     Active Substance: ENALAPRIL
     Indication: HYPERTENSION
     Dates: start: 20160630

REACTIONS (10)
  - Diarrhoea [Recovered/Resolved]
  - Neutropenia [Unknown]
  - Asthenia [Unknown]
  - Colitis [Unknown]
  - Anaemia [Recovered/Resolved]
  - Pyrexia [Unknown]
  - Bone pain [Unknown]
  - Vomiting [Recovered/Resolved]
  - Nausea [Recovered/Resolved]
  - Hypotension [Unknown]

NARRATIVE: CASE EVENT DATE: 20161121
